FAERS Safety Report 9751988 (Version 1)
Quarter: 2013Q4

REPORT INFORMATION
  Report Type: Spontaneous
  Country: US (occurrence: None)
  Receive Date: 20131211
  Receipt Date: 20131211
  Transmission Date: 20140711
  Serious: No
  Sender: FDA-Public Use
  Company Number: None

PATIENT
  Age: 70 Year
  Sex: Female
  Weight: 68.95 kg

DRUGS (12)
  1. REGADENOSON [Suspect]
     Indication: CARDIAC STRESS TEST
     Route: 042
     Dates: start: 20131205, end: 20131205
  2. ACYCLOVIR [Concomitant]
  3. VIT C [Concomitant]
  4. ASA [Concomitant]
  5. CETIRIZINE [Concomitant]
  6. DDENOSUMAB [Concomitant]
  7. HCTZ [Concomitant]
  8. LISINOPRIL [Concomitant]
  9. MVI PEDIATRIC [Concomitant]
  10. PAXIL [Concomitant]
  11. SIMVASTATIN [Concomitant]
  12. TRAZODONE [Concomitant]

REACTIONS (1)
  - Electrocardiogram QT prolonged [None]
